FAERS Safety Report 24082938 (Version 1)
Quarter: 2024Q3

REPORT INFORMATION
  Report Type: Spontaneous
  Country: CA (occurrence: CA)
  Receive Date: 20240712
  Receipt Date: 20240712
  Transmission Date: 20241016
  Serious: Yes (Other)
  Sender: TEVA
  Company Number: CA-TEVA-VS-3160015

PATIENT
  Age: 87 Year
  Sex: Female

DRUGS (1)
  1. PAROXETINE [Suspect]
     Active Substance: PAROXETINE
     Route: 065

REACTIONS (6)
  - Delirium [Recovering/Resolving]
  - Hyperreflexia [Recovering/Resolving]
  - Motor dysfunction [Recovering/Resolving]
  - Myoclonus [Recovering/Resolving]
  - Serotonin syndrome [Recovering/Resolving]
  - Muscle rigidity [Recovering/Resolving]
